FAERS Safety Report 17676599 (Version 1)
Quarter: 2020Q2

REPORT INFORMATION
  Report Type: Report from Study
  Country: US (occurrence: US)
  Receive Date: 20200416
  Receipt Date: 20200416
  Transmission Date: 20200714
  Serious: Yes (Hospitalization)
  Sender: FDA-Public Use
  Company Number: US-ADAMAS PHARMA, LLC-2020ADA00845

PATIENT
  Age: 65 Year
  Sex: Female
  Weight: 61.22 kg

DRUGS (14)
  1. VISTARIL [Concomitant]
     Active Substance: HYDROXYZINE PAMOATE
     Dosage: 50 MG, 4X/DAY
  2. GOCOVRI [Suspect]
     Active Substance: AMANTADINE
     Indication: DYSKINESIA
     Dosage: 137 MG, 1X/DAY, NIGHTLY
     Route: 048
     Dates: start: 20200314, end: 20200320
  3. GOCOVRI [Suspect]
     Active Substance: AMANTADINE
     Dosage: 137 MG, 1X/DAY, NIGHTLY
     Route: 048
     Dates: start: 20200326, end: 20200328
  4. CARBIDOPA-LEVODOPA [Concomitant]
     Active Substance: CARBIDOPA\LEVODOPA
     Dosage: 2.5 TABLETS, 5X/DAY
     Dates: end: 202003
  5. CARBIDOPA-LEVODOPA [Concomitant]
     Active Substance: CARBIDOPA\LEVODOPA
     Dosage: 2 TABLETS, 5X/DAY
     Dates: start: 202003
  6. GOCOVRI [Suspect]
     Active Substance: AMANTADINE
     Dosage: 274 MG, 1X/DAY, NIGHTLY
     Route: 048
     Dates: start: 20200321, end: 20200325
  7. CIPRO [Suspect]
     Active Substance: CIPROFLOXACIN HYDROCHLORIDE
     Indication: URINARY TRACT INFECTION
     Dosage: UNK
     Dates: start: 202003
  8. VITAMIN C [Concomitant]
     Active Substance: ASCORBIC ACID
  9. SERTRALINE [Concomitant]
     Active Substance: SERTRALINE HYDROCHLORIDE
  10. CARBIDOPA-LEVODOPA ER [Concomitant]
     Active Substance: CARBIDOPA\LEVODOPA
     Dosage: 1 AT BEDTIME AND 1 IN THE MIDDLE OF THE NIGHT IF NEEDED
  11. COLACE [Concomitant]
     Active Substance: DOCUSATE SODIUM
  12. DIVALPROEX [Concomitant]
     Active Substance: DIVALPROEX SODIUM
     Dosage: 500 MG, 2X/DAY
  13. FLUTICASONE. [Concomitant]
     Active Substance: FLUTICASONE
  14. VITAMIN D3 [Concomitant]
     Active Substance: CHOLECALCIFEROL

REACTIONS (12)
  - Hallucination [Not Recovered/Not Resolved]
  - Dry mouth [Unknown]
  - Parkinson^s disease [Not Recovered/Not Resolved]
  - Delusion [Unknown]
  - Fatigue [Unknown]
  - Urinary tract infection [Unknown]
  - Constipation [Unknown]
  - Fall [Recovered/Resolved]
  - Dyskinesia [Recovering/Resolving]
  - Product dose omission [Recovered/Resolved]
  - Anxiety [Unknown]
  - Loss of personal independence in daily activities [Unknown]

NARRATIVE: CASE EVENT DATE: 202003
